FAERS Safety Report 19583829 (Version 2)
Quarter: 2021Q3

REPORT INFORMATION
  Report Type: Spontaneous
  Country: US (occurrence: US)
  Receive Date: 20210720
  Receipt Date: 20210802
  Transmission Date: 20211014
  Serious: No
  Sender: FDA-Public Use
  Company Number: US-B.I. PHARMACEUTICALS,INC./RIDGEFIELD-2021-BI-116203

PATIENT
  Sex: Female

DRUGS (2)
  1. JARDIANCE [Suspect]
     Active Substance: EMPAGLIFLOZIN
     Indication: PRODUCT USED FOR UNKNOWN INDICATION
     Route: 065
  2. JARDIANCE [Suspect]
     Active Substance: EMPAGLIFLOZIN
     Dosage: 25MG
     Route: 065
     Dates: end: 2021

REACTIONS (8)
  - Skin mass [Unknown]
  - Vulvovaginal mycotic infection [Recovered/Resolved]
  - Vulvovaginal pruritus [Not Recovered/Not Resolved]
  - Rash erythematous [Unknown]
  - Skin reaction [Unknown]
  - Parapsoriasis [Recovered/Resolved]
  - Oedema [Unknown]
  - Vulval disorder [Recovered/Resolved]
